FAERS Safety Report 10806004 (Version 1)
Quarter: 2015Q1

REPORT INFORMATION
  Report Type: Report from Study
  Country: US (occurrence: US)
  Receive Date: 20150217
  Receipt Date: 20150217
  Transmission Date: 20150721
  Serious: No
  Sender: FDA-Public Use
  Company Number: US-ABBVIE-14K-163-1245957-00

PATIENT
  Age: 63 Year
  Sex: Female

DRUGS (16)
  1. METHOTREXATE [Concomitant]
     Active Substance: METHOTREXATE
     Indication: RHEUMATOID ARTHRITIS
     Dosage: EVERY THURSDAY
  2. MELOXICAM. [Concomitant]
     Active Substance: MELOXICAM
     Indication: PAIN
  3. ABILIFY [Concomitant]
     Active Substance: ARIPIPRAZOLE
     Indication: DEPRESSION
     Dosage: AT NIGHT
  4. NIACIN. [Concomitant]
     Active Substance: NIACIN
     Indication: VITAMIN SUPPLEMENTATION
  5. CALCIUM [Concomitant]
     Active Substance: CALCIUM
     Indication: MINERAL SUPPLEMENTATION
  6. HUMIRA [Suspect]
     Active Substance: ADALIMUMAB
     Indication: RHEUMATOID ARTHRITIS
     Dates: end: 20140512
  7. FOLIC ACID. [Concomitant]
     Active Substance: FOLIC ACID
     Indication: VITAMIN SUPPLEMENTATION
  8. LEVOTHYROXINE [Concomitant]
     Active Substance: LEVOTHYROXINE
     Indication: HORMONE REPLACEMENT THERAPY
  9. VITAMIN C [Concomitant]
     Active Substance: ASCORBIC ACID
     Indication: VITAMIN SUPPLEMENTATION
  10. CELEBREX [Concomitant]
     Active Substance: CELECOXIB
     Indication: PAIN
  11. OMEPRAZOLE. [Concomitant]
     Active Substance: OMEPRAZOLE
     Indication: GASTRIC ULCER
  12. RITALIN [Concomitant]
     Active Substance: METHYLPHENIDATE HYDROCHLORIDE
     Indication: DEPRESSION
  13. CYMBALTA [Concomitant]
     Active Substance: DULOXETINE HYDROCHLORIDE
     Indication: DEPRESSION
  14. MULTIVITAMIN [Concomitant]
     Active Substance: VITAMINS
     Indication: VITAMIN SUPPLEMENTATION
  15. REMERON [Concomitant]
     Active Substance: MIRTAZAPINE
     Indication: DEPRESSION
  16. NUVIGIL [Concomitant]
     Active Substance: ARMODAFINIL
     Indication: SLEEP APNOEA SYNDROME

REACTIONS (2)
  - Drug dose omission [Not Recovered/Not Resolved]
  - Pain [Not Recovered/Not Resolved]

NARRATIVE: CASE EVENT DATE: 20140526
